FAERS Safety Report 8188487-2 (Version None)
Quarter: 2012Q1

REPORT INFORMATION
  Report Type: 
  Country: None (occurrence: None)
  Receive Date: 20120306
  Receipt Date: 20120229
  Transmission Date: 20120608
  Serious: Yes (Death, Hospitalization)
  Sender: FDA-Public Use
  Company Number: PHHO2012CN000599

PATIENT
  Sex: Male
  Weight: 57 kg

DRUGS (3)
  1. TASIGNA [Suspect]
     Indication: CHRONIC MYELOID LEUKAEMIA
     Dosage: 300 MG, BID
     Route: 048
     Dates: start: 20110716, end: 20111007
  2. TASIGNA [Suspect]
     Dosage: NO TREATMENT RECEIVED
     Dates: start: 20111008, end: 20111103
  3. TASIGNA [Suspect]
     Dosage: 400 MG, QD
     Route: 048
     Dates: start: 20111104, end: 20111130

REACTIONS (5)
  - NEUTROPHIL COUNT DECREASED [None]
  - CEREBRAL HAEMORRHAGE [None]
  - WHITE BLOOD CELL COUNT DECREASED [None]
  - BONE MARROW FAILURE [None]
  - PLATELET COUNT DECREASED [None]
